FAERS Safety Report 6816885-5 (Version None)
Quarter: 2010Q3

REPORT INFORMATION
  Report Type: 
  Country: None (occurrence: None)
  Receive Date: 20100706
  Receipt Date: 20100629
  Transmission Date: 20110219
  Serious: Yes (Death)
  Sender: FDA-Public Use
  Company Number: SE-NAPPMUNDI-GBR-2010-0006733

PATIENT
  Age: 77 Year
  Sex: Male

DRUGS (10)
  1. OXYCONTIN [Suspect]
     Indication: PRODUCT USED FOR UNKNOWN INDICATION
  2. OXYCODONE HCL [Suspect]
     Indication: PRODUCT USED FOR UNKNOWN INDICATION
  3. FORTODOL [Suspect]
     Indication: PRODUCT USED FOR UNKNOWN INDICATION
  4. ACETAMINOPHEN [Suspect]
     Indication: PRODUCT USED FOR UNKNOWN INDICATION
  5. MADOPARK [Suspect]
     Indication: PRODUCT USED FOR UNKNOWN INDICATION
  6. MOVICOL                            /01053601/ [Suspect]
     Indication: PRODUCT USED FOR UNKNOWN INDICATION
  7. CILAXORAL [Suspect]
     Indication: PRODUCT USED FOR UNKNOWN INDICATION
  8. LAKTULOS [Suspect]
     Indication: PRODUCT USED FOR UNKNOWN INDICATION
  9. CALCICHEW-D3 [Suspect]
     Indication: PRODUCT USED FOR UNKNOWN INDICATION
  10. ALENAT [Suspect]
     Indication: PRODUCT USED FOR UNKNOWN INDICATION

REACTIONS (1)
  - ACUTE HEPATIC FAILURE [None]
